FAERS Safety Report 9580729 (Version 1)
Quarter: 2013Q4

REPORT INFORMATION
  Report Type: Spontaneous
  Country: US (occurrence: US)
  Receive Date: 20131002
  Receipt Date: 20131002
  Transmission Date: 20140711
  Serious: Yes (Hospitalization, Other)
  Sender: FDA-Public Use
  Company Number: US-BAYER-2013-118648

PATIENT
  Sex: Female

DRUGS (6)
  1. BETASERON [Suspect]
     Indication: MULTIPLE SCLEROSIS
     Dosage: UNK UNK, QOD
     Route: 065
     Dates: start: 2010
  2. BETASERON [Suspect]
     Indication: MULTIPLE SCLEROSIS
     Dosage: UNK
     Dates: start: 2012
  3. EXTAVIA [Suspect]
     Indication: MULTIPLE SCLEROSIS
     Dosage: UNK
  4. EXTAVIA [Suspect]
     Indication: MULTIPLE SCLEROSIS
  5. CELEXA [Suspect]
     Indication: DEPRESSION
     Dosage: 0.5 DF, BID
     Route: 065
     Dates: start: 2010
  6. CELEXA [Suspect]
     Indication: DEPRESSION
     Dosage: 2 DF, UNK
     Route: 065

REACTIONS (13)
  - Depressed mood [Unknown]
  - Osteoporosis [Unknown]
  - Bone disorder [Unknown]
  - Hypovitaminosis [Unknown]
  - Myocardial infarction [Unknown]
  - Feeling abnormal [Unknown]
  - Dizziness [Unknown]
  - Fall [Unknown]
  - Nausea [Unknown]
  - Vomiting [Unknown]
  - Finger deformity [Unknown]
  - Stent placement [Unknown]
  - Pneumonia [Unknown]
